FAERS Safety Report 25146213 (Version 1)
Quarter: 2025Q2

REPORT INFORMATION
  Report Type: Spontaneous
  Country: FR (occurrence: FR)
  Receive Date: 20250401
  Receipt Date: 20250401
  Transmission Date: 20250717
  Serious: Yes (Hospitalization)
  Sender: MERCK SHARP AND DOHME
  Company Number: None

PATIENT
  Age: 65 Year
  Sex: Male
  Weight: 60.5 kg

DRUGS (2)
  1. TEMODAL [Suspect]
     Active Substance: TEMOZOLOMIDE
     Indication: Metastatic carcinoid tumour
     Route: 048
     Dates: start: 20250226, end: 20250302
  2. TEMODAL [Suspect]
     Active Substance: TEMOZOLOMIDE
     Indication: Metastatic carcinoid tumour
     Route: 048
     Dates: start: 20250129, end: 20250202

REACTIONS (1)
  - Acute kidney injury [Recovered/Resolved with Sequelae]

NARRATIVE: CASE EVENT DATE: 20250204
